FAERS Safety Report 23646089 (Version 1)
Quarter: 2024Q1

REPORT INFORMATION
  Report Type: Report from Study
  Country: US (occurrence: US)
  Receive Date: 20240319
  Receipt Date: 20240319
  Transmission Date: 20240409
  Serious: No
  Sender: FDA-Public Use
  Company Number: US-ESPERIONTHERAPEUTICS-2023USA00503

PATIENT
  Age: 71 Year
  Sex: Female
  Weight: 82.993 kg

DRUGS (2)
  1. BEMPEDOIC ACID\EZETIMIBE [Suspect]
     Active Substance: BEMPEDOIC ACID\EZETIMIBE
     Indication: Blood cholesterol increased
     Dosage: 180 MG/10 MG, QD
     Route: 048
     Dates: start: 202304, end: 20230509
  2. BEMPEDOIC ACID\EZETIMIBE [Suspect]
     Active Substance: BEMPEDOIC ACID\EZETIMIBE
     Dosage: 180 MG/10 MG, QD
     Route: 048
     Dates: start: 20230511

REACTIONS (4)
  - Tenderness [Recovered/Resolved]
  - Gastrooesophageal reflux disease [Recovered/Resolved]
  - Gait inability [Recovered/Resolved]
  - Pain in extremity [Recovered/Resolved]

NARRATIVE: CASE EVENT DATE: 20230401
